FAERS Safety Report 8998086 (Version 2)
Quarter: 2013Q4

REPORT INFORMATION
  Report Type: Report from Study
  Country: NL (occurrence: NL)
  Receive Date: 20130104
  Receipt Date: 20131115
  Transmission Date: 20140711
  Serious: Yes (Hospitalization)
  Sender: FDA-Public Use
  Company Number: PHHO2013NL000470

PATIENT
  Age: 69 Year
  Sex: Male
  Weight: 101 kg

DRUGS (6)
  1. AMIODARONE [Suspect]
     Dosage: 100 MG, QD 6 TIMES PER WEEK 200 MG ORAL QD 1 TIME PER WEEK
     Route: 048
     Dates: start: 20121217, end: 20121221
  2. BLINDED ACZ885 [Suspect]
     Indication: CARDIOVASCULAR EVENT PROPHYLAXIS
     Dosage: DOUBLE BLINDED
     Route: 048
     Dates: start: 20120801
  3. BLINDED NO TREATMENT RECEIVED [Suspect]
     Indication: CARDIOVASCULAR EVENT PROPHYLAXIS
     Dosage: DOUBLE BLINDED
     Route: 048
     Dates: start: 20120801
  4. BLINDED PLACEBO [Suspect]
     Indication: CARDIOVASCULAR EVENT PROPHYLAXIS
     Dosage: DOUBLE BLINDED
     Route: 048
     Dates: start: 20120801
  5. METOPROLOL [Concomitant]
     Indication: CARDIOVASCULAR DISORDER
     Dosage: 100 MG, QD
     Route: 048
     Dates: start: 19990116
  6. SOTALOL [Concomitant]
     Indication: VENTRICULAR TACHYCARDIA
     Dosage: 40 MG, BID
     Dates: start: 20130806, end: 20131029

REACTIONS (2)
  - Cardiac failure [Recovered/Resolved]
  - Ventricular tachycardia [Recovered/Resolved]
